FAERS Safety Report 11813533 (Version 1)
Quarter: 2015Q4

REPORT INFORMATION
  Report Type: Spontaneous
  Country: US (occurrence: US)
  Receive Date: 20151209
  Receipt Date: 20151209
  Transmission Date: 20160305
  Serious: No
  Sender: FDA-Public Use
  Company Number: US-GLENMARK PHARMACEUTICALS INC, USA.-2015GMK019348

PATIENT

DRUGS (3)
  1. ZOLMITRIPTAN. [Suspect]
     Active Substance: ZOLMITRIPTAN
     Dosage: 6 TO 8 TABLETS PER MONTH, PRN UNKUNK
     Route: 048
  2. IBUPROFEN. [Concomitant]
     Active Substance: IBUPROFEN
     Indication: PAIN
     Dosage: OCCASIONALLY
  3. ZOLMITRIPTAN. [Suspect]
     Active Substance: ZOLMITRIPTAN
     Indication: MIGRAINE
     Dosage: 6 TO 8 TABLETS PER MONTH, PRN UNK
     Route: 048

REACTIONS (3)
  - Drug ineffective [Recovered/Resolved]
  - Headache [Recovered/Resolved]
  - Product quality issue [Unknown]

NARRATIVE: CASE EVENT DATE: 201508
